FAERS Safety Report 7232903-7 (Version None)
Quarter: 2011Q1

REPORT INFORMATION
  Report Type: 
  Country: None (occurrence: None)
  Receive Date: 20110119
  Receipt Date: 20110107
  Transmission Date: 20110831
  Serious: Yes (Other)
  Sender: FDA-Public Use
  Company Number: PHHY2011VE02505

PATIENT
  Sex: Female

DRUGS (3)
  1. TILIUM [Concomitant]
     Indication: GASTRITIS
     Dates: start: 20080101
  2. ACLASTA [Suspect]
     Indication: OSTEOPOROSIS
     Dosage: 5 MG ANNUALLY
     Route: 042
     Dates: start: 20080401, end: 20100101
  3. DIOVAN [Suspect]
     Indication: HYPERTENSION
     Dosage: UNK
     Route: 048
     Dates: start: 20060101

REACTIONS (6)
  - SLEEP DISORDER [None]
  - HYPERTENSION [None]
  - DIZZINESS [None]
  - ASTHENIA [None]
  - ASTHMA [None]
  - PAIN [None]
